FAERS Safety Report 7959119-0 (Version None)
Quarter: 2011Q4

REPORT INFORMATION
  Report Type: 
  Country: None (occurrence: None)
  Receive Date: 20111206
  Receipt Date: 20111130
  Transmission Date: 20120403
  Serious: Yes (Hospitalization)
  Sender: FDA-Public Use
  Company Number: CH-B.I. PHARMACEUTICALS,INC./RIDGEFIELD-2011-AP-00638SI

PATIENT
  Sex: Female

DRUGS (4)
  1. OMEPRAZOLE [Concomitant]
  2. TORSEMIDE [Concomitant]
     Indication: HYPERTENSION
  3. PRAMIPEXOLE DIHYDROCHLORIDE [Suspect]
     Indication: PARKINSON'S DISEASE
     Dosage: 0.25 - 0 - 0.75
     Dates: start: 20100421
  4. SPASMO CANULASE [Concomitant]
     Route: 065

REACTIONS (2)
  - PANCREATITIS ACUTE [None]
  - PANCREATITIS RELAPSING [None]
